FAERS Safety Report 5242458-4 (Version None)
Quarter: 2007Q1

REPORT INFORMATION
  Report Type: 
  Country: None (occurrence: None)
  Receive Date: 20070214
  Receipt Date: 20070208
  Transmission Date: 20070707
  Serious: Yes (Other)
  Sender: FDA-Public Use
  Company Number: 2006SP008927

PATIENT
  Age: 37 Year
  Sex: Female
  Weight: 88.905 kg

DRUGS (10)
  1. PEG-INTRON [Suspect]
     Indication: HEPATITIS C
     Dosage: 150 MCG; QW; SC
     Route: 058
     Dates: start: 20061222
  2. RIBASPHERE [Suspect]
     Indication: HEPATITIS C
     Dosage: 1200 MG; QD; PO
     Route: 048
     Dates: start: 20061223
  3. DICYCLOMINE [Concomitant]
  4. SEROQUEL [Concomitant]
  5. TRILEPTAL [Concomitant]
  6. CYMBALTA [Concomitant]
  7. CYCLOBENZAPRINE HCL [Concomitant]
  8. NAPROXEN [Concomitant]
  9. FOLIC ACID [Concomitant]
  10. NEXIUM [Concomitant]

REACTIONS (13)
  - ANXIETY [None]
  - ARTHRALGIA [None]
  - ASTHENIA [None]
  - BLOOD POTASSIUM DECREASED [None]
  - DEHYDRATION [None]
  - DEPRESSION [None]
  - DRUG INEFFECTIVE [None]
  - FATIGUE [None]
  - INSOMNIA [None]
  - NAUSEA [None]
  - PAIN IN EXTREMITY [None]
  - THROAT IRRITATION [None]
  - VOMITING [None]
